FAERS Safety Report 24344779 (Version 5)
Quarter: 2024Q4

REPORT INFORMATION
  Report Type: Spontaneous
  Country: US (occurrence: US)
  Receive Date: 20240920
  Receipt Date: 20241218
  Transmission Date: 20250114
  Serious: No
  Sender: PFIZER
  Company Number: US-PFIZER INC-PV202400121923

PATIENT
  Age: 69 Year
  Sex: Female
  Weight: 65.76 kg

DRUGS (6)
  1. TUKYSA [Suspect]
     Active Substance: TUCATINIB
     Indication: Neoplasm malignant
     Dosage: 150 MG, 2X/DAY
     Route: 048
     Dates: start: 202210, end: 202301
  2. TUKYSA [Suspect]
     Active Substance: TUCATINIB
     Dosage: 150 MG, 2X/DAY
     Route: 048
  3. KISQALI [Suspect]
     Active Substance: RIBOCICLIB
     Indication: Neoplasm malignant
     Dosage: 2 PILLS A DAY
  4. KISQALI [Suspect]
     Active Substance: RIBOCICLIB
     Dosage: 1 PILL A DAY
  5. KISQALI [Suspect]
     Active Substance: RIBOCICLIB
     Dosage: 400 MG, 2X/DAY
     Dates: start: 202406
  6. KISQALI [Suspect]
     Active Substance: RIBOCICLIB
     Dosage: 200 MG, 2X/DAY
     Dates: start: 2024

REACTIONS (3)
  - Full blood count decreased [Recovered/Resolved]
  - Fatigue [Recovered/Resolved]
  - White blood cell count abnormal [Unknown]

NARRATIVE: CASE EVENT DATE: 20240801
